FAERS Safety Report 17646379 (Version 2)
Quarter: 2020Q2

REPORT INFORMATION
  Report Type: Other
  Country: US (occurrence: US)
  Receive Date: 20200408
  Receipt Date: 20200421
  Transmission Date: 20200713
  Serious: Yes (Hospitalization)
  Sender: FDA-Public Use
  Company Number: US-INTERCEPT-PM2020000786

PATIENT
  Age: 68 Year
  Sex: Male
  Weight: 81 kg

DRUGS (22)
  1. AFINITOR [Suspect]
     Active Substance: EVEROLIMUS
     Dosage: UNK
     Dates: end: 20200306
  2. LENVIMA [Suspect]
     Active Substance: LENVATINIB
     Dosage: UNK
     Dates: end: 20200306
  3. LENVIMA [Suspect]
     Active Substance: LENVATINIB
     Dosage: UNK
     Dates: start: 20200310, end: 20200315
  4. AFINITOR [Suspect]
     Active Substance: EVEROLIMUS
     Indication: PRODUCT USED FOR UNKNOWN INDICATION
     Dosage: 2.5 MG, UNK
  5. CARAFATE [Concomitant]
     Active Substance: SUCRALFATE
     Dosage: 1G/10ML
     Route: 048
  6. PANTOPRAZOLE SODIUM. [Concomitant]
     Active Substance: PANTOPRAZOLE SODIUM
     Dosage: 20 MG, UNK
  7. LENVIMA [Suspect]
     Active Substance: LENVATINIB
     Dosage: UNK
     Dates: start: 20200206, end: 20200224
  8. OCALIVA [Suspect]
     Active Substance: OBETICHOLIC ACID
     Indication: PRIMARY BILIARY CHOLANGITIS
     Dosage: 5 MG, QD
     Route: 048
     Dates: start: 20200203, end: 20200315
  9. AFINITOR [Suspect]
     Active Substance: EVEROLIMUS
     Dosage: UNK
     Dates: start: 20200206, end: 20200224
  10. ALLOPURINOL. [Concomitant]
     Active Substance: ALLOPURINOL
     Dosage: 100 MG, UNK
  11. EUCERIN                            /00021201/ [Concomitant]
     Active Substance: SALICYLIC ACID
  12. ZYRTEC [Concomitant]
     Active Substance: CETIRIZINE HYDROCHLORIDE
  13. CLONIDINE HCL [Concomitant]
     Active Substance: CLONIDINE HYDROCHLORIDE
     Dosage: 0.1 MG, UNK
  14. LENVIMA [Suspect]
     Active Substance: LENVATINIB
     Indication: PRODUCT USED FOR UNKNOWN INDICATION
     Dosage: UNK
  15. FERROUS SULFATE. [Concomitant]
     Active Substance: FERROUS SULFATE
  16. METOPROLOL SUCCINATE. [Concomitant]
     Active Substance: METOPROLOL SUCCINATE
  17. CARVEDILOL. [Concomitant]
     Active Substance: CARVEDILOL
     Dosage: 12.5 MG, UNK
  18. LEVOTHYROXINE SODIUM. [Concomitant]
     Active Substance: LEVOTHYROXINE SODIUM
  19. BUMETANIDE. [Concomitant]
     Active Substance: BUMETANIDE
  20. HYDRALAZINE HCL [Concomitant]
     Active Substance: HYDRALAZINE HYDROCHLORIDE
     Dosage: 100 MG, UNK
  21. AFINITOR [Suspect]
     Active Substance: EVEROLIMUS
     Dosage: UNK, QOD
     Dates: start: 20200310, end: 20200315
  22. POTASSIUM CHLORIDE. [Concomitant]
     Active Substance: POTASSIUM CHLORIDE

REACTIONS (5)
  - Dyspnoea [Unknown]
  - Faeces discoloured [Unknown]
  - Ulcer [Unknown]
  - Melaena [Unknown]
  - Hypertension [Unknown]

NARRATIVE: CASE EVENT DATE: 20200315
